FAERS Safety Report 4478312-5 (Version None)
Quarter: 2004Q4

REPORT INFORMATION
  Report Type: 
  Country: None (occurrence: None)
  Receive Date: 20041019
  Receipt Date: 20040921
  Transmission Date: 20050328
  Serious: Yes (Hospitalization)
  Sender: FDA-Public Use
  Company Number: MX-ROCHE-383193

PATIENT
  Sex: Male
  Weight: 90 kg

DRUGS (2)
  1. XENICAL [Suspect]
     Indication: OBESITY
     Route: 048
     Dates: start: 20040615, end: 20040817
  2. XENICAL [Suspect]
     Dosage: THERAPY DURATION: 1.5 YEARS.
     Route: 048
     Dates: start: 20020615, end: 20040615

REACTIONS (4)
  - DIVERTICULUM [None]
  - FATIGUE [None]
  - INTESTINAL PERFORATION [None]
  - PALLOR [None]
